FAERS Safety Report 6752797-3 (Version None)
Quarter: 2010Q2

REPORT INFORMATION
  Report Type: 
  Country: None (occurrence: None)
  Receive Date: 20100602
  Receipt Date: 20100519
  Transmission Date: 20101027
  Serious: No
  Sender: FDA-Public Use
  Company Number: DE-MYLANLABS-2010S1008821

PATIENT
  Sex: Female

DRUGS (1)
  1. FENTANYL [Suspect]
     Dosage: SHE USED UP TO 15 PATCHES PER DAY
     Route: 062

REACTIONS (4)
  - APPLICATION SITE BURN [None]
  - APPLICATION SITE SCAR [None]
  - DRUG ABUSE [None]
  - DRUG ADMINISTRATION ERROR [None]
